FAERS Safety Report 18163170 (Version 1)
Quarter: 2020Q3

REPORT INFORMATION
  Report Type: Spontaneous
  Country: US (occurrence: US)
  Receive Date: 20200818
  Receipt Date: 20200818
  Transmission Date: 20201103
  Serious: No
  Sender: FDA-Public Use
  Company Number: US-HORIZON-PRO-0190-2020

PATIENT
  Age: 20 Year
  Sex: Female

DRUGS (1)
  1. PROCYSBI [Suspect]
     Active Substance: CYSTEAMINE BITARTRATE
     Indication: CYSTINOSIS
     Dosage: 14 X 75 MG CAPSULES (1050 MG) EVERY 12 HOURS
     Route: 048
     Dates: start: 201404

REACTIONS (1)
  - Illness [Unknown]
